FAERS Safety Report 13228669 (Version 2)
Quarter: 2017Q2

REPORT INFORMATION
  Report Type: Spontaneous
  Country: US (occurrence: US)
  Receive Date: 20170213
  Receipt Date: 20170501
  Transmission Date: 20170830
  Serious: No
  Sender: FDA-Public Use
  Company Number: US-ROCHE-1864540

PATIENT
  Sex: Female
  Weight: 56.75 kg

DRUGS (16)
  1. ALECENSA [Suspect]
     Active Substance: ALECTINIB HYDROCHLORIDE
     Indication: LUNG NEOPLASM MALIGNANT
     Route: 048
     Dates: start: 20160518
  2. BENICAR [Concomitant]
     Active Substance: OLMESARTAN MEDOXOMIL
     Route: 048
  3. MACROBID (UNITED STATES) [Concomitant]
  4. OMEGA-3 ACIDS [Concomitant]
     Active Substance: OMEGA-3 FATTY ACIDS
  5. LORAZEPAM. [Concomitant]
     Active Substance: LORAZEPAM
  6. LUNESTA [Concomitant]
     Active Substance: ESZOPICLONE
  7. ALECENSA [Suspect]
     Active Substance: ALECTINIB HYDROCHLORIDE
     Route: 048
     Dates: start: 20160519
  8. FOLIC ACID. [Concomitant]
     Active Substance: FOLIC ACID
  9. LIPITOR [Concomitant]
     Active Substance: ATORVASTATIN CALCIUM
  10. LOMOTIL (UNITED STATES) [Concomitant]
  11. ZOFRAN [Concomitant]
     Active Substance: ONDANSETRON HYDROCHLORIDE
     Dosage: ODT
     Route: 065
  12. KETOROLAC TROMETHAMINE. [Concomitant]
     Active Substance: KETOROLAC TROMETHAMINE
  13. AUGMENTIN [Concomitant]
     Active Substance: AMOXICILLIN\CLAVULANATE POTASSIUM
  14. GLUCOSAMINE MSM COMPLEX PRODUCT NOS [Concomitant]
  15. CINNAMON. [Concomitant]
     Active Substance: CINNAMON
     Route: 048
  16. CRANBERRY. [Concomitant]
     Active Substance: CRANBERRY
     Dosage: CONCENTRATE
     Route: 048

REACTIONS (2)
  - Weight increased [Recovering/Resolving]
  - Constipation [Not Recovered/Not Resolved]
